FAERS Safety Report 21601218 (Version 1)
Quarter: 2022Q4

REPORT INFORMATION
  Report Type: Spontaneous
  Country: CA (occurrence: CA)
  Receive Date: 20221116
  Receipt Date: 20221116
  Transmission Date: 20230112
  Serious: Yes (Other)
  Sender: FDA-Public Use
  Company Number: CA-PFIZER INC-202200934699

PATIENT
  Age: 47 Year
  Sex: Female

DRUGS (3)
  1. ABRILADA [Suspect]
     Active Substance: ADALIMUMAB-AFZB
     Indication: Colitis ulcerative
     Dosage: 160MG (WEEK 0: 160MG, WEEK 2:80MG, THEN 40MG EVERY OTHER WEEK FROM WEEK 4)
     Route: 058
     Dates: start: 20220725
  2. ABRILADA [Suspect]
     Active Substance: ADALIMUMAB-AFZB
     Dosage: 80MG (WEEK 0: 160MG, WEEK 2:80MG, THEN 40MG EVERY OTHER WEEK FROM WEEK 4)
     Route: 058
  3. ABRILADA [Suspect]
     Active Substance: ADALIMUMAB-AFZB
     Dosage: 40MG (WEEK 0: 160MG, WEEK 2:80MG, THEN 40MG EVERY OTHER WEEK FROM WEEK 4)
     Route: 058

REACTIONS (4)
  - Rheumatoid arthritis [Recovering/Resolving]
  - Rhinitis allergic [Recovering/Resolving]
  - Seborrhoeic dermatitis [Recovering/Resolving]
  - Condition aggravated [Recovering/Resolving]

NARRATIVE: CASE EVENT DATE: 20220101
